FAERS Safety Report 6472183-3 (Version None)
Quarter: 2009Q4

REPORT INFORMATION
  Report Type: 
  Country: None (occurrence: None)
  Receive Date: 20091203
  Receipt Date: 20091130
  Transmission Date: 20100525
  Serious: Yes (Hospitalization, Other)
  Sender: FDA-Public Use
  Company Number: US-AMGEN-US371961

PATIENT
  Sex: Male
  Weight: 69.9 kg

DRUGS (5)
  1. NPLATE [Suspect]
     Indication: IDIOPATHIC THROMBOCYTOPENIC PURPURA
     Route: 065
     Dates: start: 20090609, end: 20091014
  2. ACCUPRIL [Concomitant]
     Route: 048
     Dates: start: 20060407
  3. FOSAMAX [Concomitant]
     Route: 048
     Dates: start: 20060407
  4. LOPRESSOR [Concomitant]
     Route: 048
     Dates: start: 20060407
  5. PREDNISONE [Concomitant]
     Route: 048
     Dates: start: 20060407

REACTIONS (3)
  - BLOOD PRESSURE ABNORMAL [None]
  - PLATELET COUNT DECREASED [None]
  - THERAPEUTIC RESPONSE DECREASED [None]
